FAERS Safety Report 8601519-X (Version None)
Quarter: 2012Q3

REPORT INFORMATION
  Report Type: 
  Country: None (occurrence: None)
  Receive Date: 20120817
  Receipt Date: 20120810
  Transmission Date: 20120928
  Serious: Yes (Hospitalization)
  Sender: FDA-Public Use
  Company Number: DE-PFIZER INC-2012197126

PATIENT
  Sex: Male
  Weight: 71 kg

DRUGS (6)
  1. LAMICTAL [Concomitant]
     Indication: EPILEPSY
     Dosage: UNK
     Dates: start: 20020802
  2. NEURONTIN [Concomitant]
     Indication: EPILEPSY
     Dosage: UNK
     Dates: start: 19960701
  3. GENOTROPIN [Suspect]
     Dosage: 0.5 MG, 7/WK
     Route: 058
     Dates: start: 20030815
  4. KEPPRA [Concomitant]
     Indication: DEPRESSION
     Dosage: UNK
     Dates: start: 20050101
  5. HYDROCORTISONE [Concomitant]
     Indication: BLOOD CORTICOTROPHIN DECREASED
     Dosage: UNK
     Dates: start: 19980701
  6. OXCARBAZEPINE [Concomitant]
     Indication: EPILEPSY
     Dosage: UNK
     Dates: start: 20040823

REACTIONS (1)
  - NEURALGIA [None]
